FAERS Safety Report 10703512 (Version 1)
Quarter: 2015Q1

REPORT INFORMATION
  Report Type: Spontaneous
  Country: KR (occurrence: KR)
  Receive Date: 20150112
  Receipt Date: 20150112
  Transmission Date: 20150721
  Serious: Yes (Other)
  Sender: FDA-Public Use
  Company Number: KR-BAYER-2014-188502

PATIENT
  Sex: Female

DRUGS (1)
  1. STIVARGA [Suspect]
     Active Substance: REGORAFENIB
     Indication: COLORECTAL CANCER METASTATIC
     Dosage: 160 MG DAILY DOSE
     Route: 048

REACTIONS (9)
  - Skin haemorrhage [None]
  - Dysphonia [None]
  - Pain [None]
  - Gait disturbance [None]
  - Epistaxis [None]
  - Metastases to lung [None]
  - Metastases to liver [None]
  - Skin infection [None]
  - Feeling abnormal [None]

NARRATIVE: CASE EVENT DATE: 20141221
